FAERS Safety Report 9286842 (Version 2)
Quarter: 2013Q2

REPORT INFORMATION
  Report Type: Spontaneous
  Country: US (occurrence: US)
  Receive Date: 20130513
  Receipt Date: 20130603
  Transmission Date: 20140414
  Serious: No
  Sender: FDA-Public Use
  Company Number: US-PFIZER INC-2013141296

PATIENT
  Age: 85 Year
  Sex: Male
  Weight: 80.27 kg

DRUGS (1)
  1. AZITHROMYCIN [Suspect]
     Dosage: UNK; FOR 5 DAYS

REACTIONS (1)
  - Drug ineffective [Unknown]
